FAERS Safety Report 24983016 (Version 2)
Quarter: 2025Q1

REPORT INFORMATION
  Report Type: Spontaneous
  Country: JP (occurrence: JP)
  Receive Date: 20250218
  Receipt Date: 20250220
  Transmission Date: 20250409
  Serious: Yes (Hospitalization, Other)
  Sender: MERCK SHARP & DOHME LLC
  Company Number: JP-MSD-M2024-52766

PATIENT
  Age: 8 Decade
  Sex: Male

DRUGS (3)
  1. KEYTRUDA [Suspect]
     Active Substance: PEMBROLIZUMAB
     Indication: Transitional cell carcinoma
     Dosage: DOSE DESCRIPTION : 200 MILLIGRAM, Q3W?DAILY DOSE : 9.4 MILLIGRAM?REGIMEN DOSE : 200  MILLIGRAM
     Route: 041
     Dates: start: 202410, end: 20241230
  2. PADCEV [Suspect]
     Active Substance: ENFORTUMAB VEDOTIN-EJFV
     Indication: Transitional cell carcinoma
     Dosage: DOSE DESCRIPTION : 1.25 MILLIGRAM/KILOGRAM, QOW,2 DOSES ON, 1 DOSE OFF?DAILY DOSE : 0.089 MILLIGR...
     Route: 041
     Dates: start: 202410, end: 2024
  3. PADCEV [Suspect]
     Active Substance: ENFORTUMAB VEDOTIN-EJFV
     Indication: Transitional cell carcinoma
     Dosage: DOSE DESCRIPTION : 1 MILLIGRAM/KILOGRAM, QOW 2 DOSES ON, 1 DOSE OFF?DAILY DOSE : 0.071 MILLIGRAM/...
     Route: 041
     Dates: start: 202412, end: 20241230

REACTIONS (4)
  - Interstitial lung disease [Recovered/Resolved]
  - Cytopenia [Recovered/Resolved]
  - Malaise [Recovered/Resolved]
  - Nausea [Recovered/Resolved]

NARRATIVE: CASE EVENT DATE: 20241201
